FAERS Safety Report 12517266 (Version 1)
Quarter: 2016Q2

REPORT INFORMATION
  Report Type: Spontaneous
  Country: JP (occurrence: JP)
  Receive Date: 20160630
  Receipt Date: 20160630
  Transmission Date: 20160815
  Serious: Yes (Other)
  Sender: FDA-Public Use
  Company Number: JP-PFIZER INC-2016322923

PATIENT
  Age: 72 Year
  Sex: Male

DRUGS (1)
  1. SOLANAX [Suspect]
     Active Substance: ALPRAZOLAM
     Indication: DEPRESSION
     Dosage: 0.4 MG, 3X/DAY
     Route: 048

REACTIONS (5)
  - Drug dependence [Unknown]
  - Dysphemia [Unknown]
  - Feeling hot [Unknown]
  - Diplopia [Unknown]
  - Vision blurred [Unknown]
